FAERS Safety Report 6304935-4 (Version None)
Quarter: 2009Q3

REPORT INFORMATION
  Report Type: 
  Country: None (occurrence: None)
  Receive Date: 20090807
  Receipt Date: 20090728
  Transmission Date: 20100115
  Serious: No
  Sender: FDA-Public Use
  Company Number: SPI200900231

PATIENT
  Age: 22 Year
  Sex: Female
  Weight: 55.8 kg

DRUGS (1)
  1. AMITIZA [Suspect]
     Indication: CONSTIPATION
     Dosage: 24 MCG
     Dates: start: 20090701, end: 20090701

REACTIONS (2)
  - DIZZINESS [None]
  - DYSPNOEA [None]
